FAERS Safety Report 23503352 (Version 1)
Quarter: 2024Q1

REPORT INFORMATION
  Report Type: Report from Study
  Country: US (occurrence: US)
  Receive Date: 20240208
  Receipt Date: 20240208
  Transmission Date: 20240410
  Serious: Yes (Other)
  Sender: FDA-Public Use
  Company Number: US-ABBVIE-5621866

PATIENT
  Sex: Female

DRUGS (3)
  1. SKYRIZI [Suspect]
     Active Substance: RISANKIZUMAB-RZAA
     Indication: Psoriasis
     Dosage: FORM STRENGTH: 150 MILLIGRAM?WEEK 4
     Route: 058
     Dates: start: 20231022, end: 20231022
  2. SKYRIZI [Suspect]
     Active Substance: RISANKIZUMAB-RZAA
     Dosage: FORM STRENGTH: 150 MILLIGRAM?FREQUENCY TEXT: EVERY 12 WEEKS (WEEK 16)
     Route: 058
     Dates: start: 20240112
  3. SKYRIZI [Suspect]
     Active Substance: RISANKIZUMAB-RZAA
     Dosage: FORM STRENGTH: 150 MILLIGRAM, ?WEEK 0
     Route: 058
     Dates: start: 20230924, end: 20230924

REACTIONS (7)
  - Dental implantation [Unknown]
  - Fatigue [Unknown]
  - Decreased appetite [Unknown]
  - Skin burning sensation [Unknown]
  - Pruritus [Unknown]
  - Impaired healing [Unknown]
  - Inappropriate schedule of product administration [Unknown]

NARRATIVE: CASE EVENT DATE: 20230101
